FAERS Safety Report 7288512-7 (Version None)
Quarter: 2011Q1

REPORT INFORMATION
  Report Type: 
  Country: None (occurrence: None)
  Receive Date: 20110201
  Receipt Date: 20110125
  Transmission Date: 20110831
  Serious: Yes (Other)
  Sender: FDA-Public Use
  Company Number: 2011MA000728

PATIENT
  Age: 51 Year
  Sex: Male

DRUGS (8)
  1. SERETIDE EVOHALER [Concomitant]
  2. CITALOPRAM HYDROBROMIDE [Suspect]
     Indication: ANXIETY
     Dosage: 30 MG; PO
     Route: 048
     Dates: start: 20080921
  3. IBUPROFEN [Concomitant]
  4. FOSTAIR [Concomitant]
  5. MULTI-VITAMINS [Concomitant]
  6. MOMETASONE FUROATE [Concomitant]
  7. NEDOCROMIL SODIUM [Concomitant]
  8. PARACETAMOL [Concomitant]

REACTIONS (1)
  - PANCREATITIS [None]
